FAERS Safety Report 25236554 (Version 3)
Quarter: 2025Q2

REPORT INFORMATION
  Report Type: Spontaneous
  Country: BR (occurrence: BR)
  Receive Date: 20250424
  Receipt Date: 20250612
  Transmission Date: 20250717
  Serious: No
  Sender: BAXTER
  Company Number: BR-BAXTER-2025BAX014288

PATIENT
  Age: 33 Year
  Sex: Female

DRUGS (2)
  1. IRON [Suspect]
     Active Substance: IRON
     Route: 042
     Dates: start: 20250323, end: 20250323
  2. SODIUM CHLORIDE [Suspect]
     Active Substance: SODIUM CHLORIDE
     Indication: Medication dilution
     Route: 042
     Dates: start: 20240323, end: 20240323

REACTIONS (2)
  - Paraesthesia [Recovered/Resolved]
  - Oedema peripheral [Recovered/Resolved]

NARRATIVE: CASE EVENT DATE: 20250323
